FAERS Safety Report 12772260 (Version 2)
Quarter: 2016Q4

REPORT INFORMATION
  Report Type: Spontaneous
  Country: JP (occurrence: JP)
  Receive Date: 20160922
  Receipt Date: 20161121
  Transmission Date: 20170207
  Serious: Yes (Disabling)
  Sender: FDA-Public Use
  Company Number: JP-SA-2016SA173654

PATIENT
  Age: 57 Year
  Sex: Female
  Weight: 39 kg

DRUGS (17)
  1. AVASTIN [Concomitant]
     Active Substance: BEVACIZUMAB
     Dosage: 192.5 MG/BODY
     Route: 065
     Dates: start: 20160727, end: 20160727
  2. KYTRIL [Concomitant]
     Active Substance: GRANISETRON HYDROCHLORIDE
     Route: 065
     Dates: start: 20160727, end: 20160810
  3. EMEND [Concomitant]
     Active Substance: APREPITANT
     Route: 065
     Dates: start: 20160727, end: 20160812
  4. ELPLAT [Suspect]
     Active Substance: OXALIPLATIN
     Indication: COLON CANCER
     Route: 041
     Dates: start: 20160727, end: 20160727
  5. CALCIUM LEVOFOLINATE [Concomitant]
     Active Substance: LEVOLEUCOVORIN CALCIUM
     Route: 065
     Dates: start: 20160727, end: 20160727
  6. POLARAMINE [Concomitant]
     Active Substance: DEXCHLORPHENIRAMINE MALEATE
     Route: 065
     Dates: start: 20160727, end: 20160810
  7. GASTER [Concomitant]
     Active Substance: FAMOTIDINE
     Route: 065
  8. DECADRON [Concomitant]
     Active Substance: DEXAMETHASONE
     Route: 065
     Dates: start: 20160727, end: 20160810
  9. MUCOSTA [Concomitant]
     Active Substance: REBAMIPIDE
     Route: 065
  10. ELPLAT [Suspect]
     Active Substance: OXALIPLATIN
     Indication: COLON CANCER
     Route: 041
     Dates: start: 20160810, end: 20160810
  11. 5-FU [Concomitant]
     Active Substance: FLUOROURACIL
     Route: 065
     Dates: start: 20160727, end: 20160727
  12. CALCIUM LEVOFOLINATE [Concomitant]
     Active Substance: LEVOLEUCOVORIN CALCIUM
     Route: 065
     Dates: start: 20160810, end: 20160810
  13. AVASTIN [Concomitant]
     Active Substance: BEVACIZUMAB
     Route: 065
     Dates: start: 20160810, end: 20160810
  14. GASTER [Concomitant]
     Active Substance: FAMOTIDINE
     Route: 065
     Dates: start: 20160727, end: 20160810
  15. BASEN [Concomitant]
     Active Substance: VOGLIBOSE
     Route: 065
  16. 5-FU [Concomitant]
     Active Substance: FLUOROURACIL
     Route: 065
     Dates: start: 20160810, end: 20160810
  17. BLOPRESS [Concomitant]
     Active Substance: CANDESARTAN CILEXETIL
     Route: 065

REACTIONS (1)
  - Hyperammonaemia [Recovered/Resolved]

NARRATIVE: CASE EVENT DATE: 20160812
